FAERS Safety Report 10003612 (Version 2)
Quarter: 2014Q1

REPORT INFORMATION
  Report Type: Report from Study
  Country: CA (occurrence: CA)
  Receive Date: 20140312
  Receipt Date: 20140312
  Transmission Date: 20141002
  Serious: Yes (Death, Other)
  Sender: FDA-Public Use
  Company Number: PHHY2013CA006477

PATIENT
  Sex: Female

DRUGS (1)
  1. GLEEVEC [Suspect]
     Indication: GASTROINTESTINAL STROMAL TUMOUR
     Dosage: 400 MG, QD
     Route: 048
     Dates: start: 201208

REACTIONS (15)
  - Death [Fatal]
  - Pleural effusion [Unknown]
  - Blister [Unknown]
  - Hypothyroidism [Unknown]
  - Blood potassium decreased [Unknown]
  - Anaemia [Unknown]
  - Nausea [Recovered/Resolved]
  - Vomiting [Recovered/Resolved]
  - Constipation [Unknown]
  - Blood pressure increased [Unknown]
  - Fluid retention [Unknown]
  - Pollakiuria [Unknown]
  - Local swelling [Unknown]
  - Joint swelling [Unknown]
  - Swelling [Unknown]
